FAERS Safety Report 7224998-1 (Version None)
Quarter: 2011Q1

REPORT INFORMATION
  Report Type: 
  Country: None (occurrence: None)
  Receive Date: 20110113
  Receipt Date: 20110104
  Transmission Date: 20110831
  Serious: Yes (Disabling)
  Sender: FDA-Public Use
  Company Number: SI-ACTELION-A-CH2011-43451

PATIENT
  Sex: Female
  Weight: 65 kg

DRUGS (2)
  1. FOSAMAX [Concomitant]
     Dosage: UNK
     Route: 048
     Dates: start: 20040101
  2. ZAVESCA [Suspect]
     Indication: GAUCHER'S DISEASE
     Dosage: 100 MG, TID
     Route: 048
     Dates: start: 20100615, end: 20101130

REACTIONS (3)
  - DYSARTHRIA [None]
  - DYSPHONIA [None]
  - TREMOR [None]
